FAERS Safety Report 8641897 (Version 2)
Quarter: 2013Q1

REPORT INFORMATION
  Report Type: Spontaneous
  Country: US (occurrence: US)
  Receive Date: 20120628
  Receipt Date: 20130212
  Transmission Date: 20140127
  Serious: Yes (Hospitalization)
  Sender: FDA-Public Use
  Company Number: US-ELI_LILLY_AND_COMPANY-US201206006984

PATIENT
  Age: 61 Year
  Sex: Female
  Weight: 72.11 kg

DRUGS (22)
  1. FORTEO [Suspect]
     Indication: OSTEOPOROSIS
     Dosage: 20 UG, QD
     Dates: start: 201108, end: 201209
  2. FORTEO [Suspect]
     Dosage: 20 UG, QD
     Dates: start: 201212
  3. PROZAC [Suspect]
     Indication: DEPRESSION
     Dosage: 20 MG, UNK
  4. PROZAC [Suspect]
     Dosage: 40 MG, UNK
  5. PROZAC [Suspect]
     Dosage: 60 MG, UNK
  6. PROZAC [Suspect]
     Dosage: 40 MG, EACH MORNING
  7. PROZAC [Suspect]
     Dosage: 40 MG, EACH EVENING
  8. PROZAC [Suspect]
     Dosage: 60 MG, EACH MORNING
  9. PROZAC [Suspect]
     Dosage: 60 MG, QD
     Dates: start: 1997
  10. FLUOXETINE HYDROCHLORIDE [Concomitant]
     Indication: DEPRESSION
     Dosage: 60 MG, QD
  11. KLOR-CON [Concomitant]
  12. ZOCOR [Concomitant]
  13. COZAAR [Concomitant]
  14. COREG [Concomitant]
  15. PRILOSEC [Concomitant]
  16. AMBIEN [Concomitant]
     Dosage: 1 DF, PRN
  17. XANAX [Concomitant]
     Dosage: 1 DF, PRN
  18. VITAMIN D [Concomitant]
     Dosage: 5000 MG, BID
  19. B COMPLEX [Concomitant]
  20. MULTIVITAMIN [Concomitant]
  21. FISH OIL [Concomitant]
  22. VICODIN [Concomitant]
     Dosage: 1 DF, UNK

REACTIONS (6)
  - Upper limb fracture [Recovered/Resolved]
  - Wrist fracture [Recovered/Resolved]
  - Rib fracture [Recovered/Resolved]
  - Fall [Unknown]
  - Rhinorrhoea [Unknown]
  - Prescribed overdose [Unknown]
